FAERS Safety Report 21728327 (Version 21)
Quarter: 2025Q1

REPORT INFORMATION
  Report Type: Spontaneous
  Country: US (occurrence: US)
  Receive Date: 20221214
  Receipt Date: 20250109
  Transmission Date: 20250409
  Serious: No
  Sender: PFIZER
  Company Number: US-PFIZER INC-PV202200122880

PATIENT
  Age: 67 Year
  Sex: Female

DRUGS (4)
  1. BRAFTOVI [Suspect]
     Active Substance: ENCORAFENIB
     Indication: Metastatic malignant melanoma
     Dosage: TAKE 1 OF EACH A DAY/TAKE 1 CAPSULE (75 MG) BY MOUTH DAILY AT BEDTIME
     Route: 048
  2. MEKTOVI [Suspect]
     Active Substance: BINIMETINIB
     Indication: Metastatic malignant melanoma
     Dosage: ORIGINALLY 6 PILLS A DAY
  3. MEKTOVI [Suspect]
     Active Substance: BINIMETINIB
     Dosage: TAKE 1 OF EACH A DAY/TAKE 1 TABLET (15 MG)PO QD AT BED TIME
     Route: 048
  4. NEURONTIN [Concomitant]
     Active Substance: GABAPENTIN
     Dosage: 1 CAPSULE BY MOUTH TWO TIMES A DAY FOR 90 DAYS
     Route: 048

REACTIONS (4)
  - Illness [Unknown]
  - Fatigue [Unknown]
  - Confusional state [Unknown]
  - Off label use [Unknown]
